FAERS Safety Report 15665060 (Version 1)
Quarter: 2018Q4

REPORT INFORMATION
  Report Type: Spontaneous
  Country: US (occurrence: US)
  Receive Date: 20181128
  Receipt Date: 20181128
  Transmission Date: 20190205
  Serious: Yes (Other)
  Sender: FDA-Public Use
  Company Number: None

PATIENT
  Age: 55 Year
  Sex: Female
  Weight: 63 kg

DRUGS (2)
  1. VENLAFAXINE XR 150MG CAPSULES NDC 65862-0697-30 WALGREENS [Suspect]
     Active Substance: VENLAFAXINE HYDROCHLORIDE
     Indication: DEPRESSION
     Dosage: ?          QUANTITY:2 CAPSULE(S);?
     Route: 048
     Dates: start: 20181124, end: 20181128
  2. VENLAFAXINE XR 150MG CAPSULES NDC 65862-0697-30 WALGREENS [Suspect]
     Active Substance: VENLAFAXINE HYDROCHLORIDE
     Indication: ANXIETY
     Dosage: ?          QUANTITY:2 CAPSULE(S);?
     Route: 048
     Dates: start: 20181124, end: 20181128

REACTIONS (3)
  - Therapeutic response changed [None]
  - Urticaria [None]
  - Contusion [None]

NARRATIVE: CASE EVENT DATE: 20181125
